FAERS Safety Report 7351825-4 (Version None)
Quarter: 2011Q1

REPORT INFORMATION
  Report Type: 
  Country: None (occurrence: None)
  Receive Date: 20110315
  Receipt Date: 20100129
  Transmission Date: 20110831
  Serious: No
  Sender: FDA-Public Use
  Company Number: US-BAYER-201012929NA

PATIENT
  Sex: Female
  Weight: 90.909 kg

DRUGS (1)
  1. MIRENA [Suspect]
     Indication: CONTRACEPTION
     Dosage: 20 ?G/D, CONT
     Route: 015
     Dates: start: 20090401

REACTIONS (5)
  - MENSTRUAL DISORDER [None]
  - MUSCLE SPASMS [None]
  - MENORRHAGIA [None]
  - HYPOMENORRHOEA [None]
  - GENITAL HAEMORRHAGE [None]
